FAERS Safety Report 7635861-6 (Version None)
Quarter: 2011Q3

REPORT INFORMATION
  Report Type: 
  Country: None (occurrence: None)
  Receive Date: 20110726
  Receipt Date: 20110720
  Transmission Date: 20111222
  Serious: Yes (Congenital Anomaly)
  Sender: FDA-Public Use
  Company Number: EG-SANOFI-AVENTIS-2011SA046911

PATIENT
  Sex: Male

DRUGS (1)
  1. LANTUS [Suspect]
     Indication: TYPE 1 DIABETES MELLITUS
     Route: 015

REACTIONS (4)
  - URETHRAL VALVES [None]
  - NASAL OBSTRUCTION [None]
  - PATENT DUCTUS ARTERIOSUS [None]
  - MATERNAL EXPOSURE DURING PREGNANCY [None]
